FAERS Safety Report 8347047-0 (Version None)
Quarter: 2012Q2

REPORT INFORMATION
  Report Type: 
  Country: None (occurrence: None)
  Receive Date: 20120509
  Receipt Date: 20120430
  Transmission Date: 20120825
  Serious: Yes (Other)
  Sender: FDA-Public Use
  Company Number: CA-JNJFOC-20120501954

PATIENT
  Sex: Female

DRUGS (3)
  1. AZATHIOPRINE [Concomitant]
     Route: 065
  2. PENTASA [Concomitant]
     Route: 065
  3. REMICADE [Suspect]
     Indication: CROHN'S DISEASE
     Route: 042
     Dates: start: 20110721, end: 20120401

REACTIONS (1)
  - LUPUS-LIKE SYNDROME [None]
